FAERS Safety Report 5927978-9 (Version None)
Quarter: 2008Q4

REPORT INFORMATION
  Report Type: 
  Country: None (occurrence: None)
  Receive Date: 20081022
  Receipt Date: 20081022
  Transmission Date: 20090506
  Serious: Yes (Life-Threatening, Hospitalization, Congenital Anomaly, Other)
  Sender: FDA-Public Use
  Company Number: None

PATIENT
  Sex: Male
  Weight: 3 kg

DRUGS (30)
  1. ATAZANAVIR SULFATE [Suspect]
     Indication: HIV INFECTION
     Dosage: 300 MG 1 QHS PO
     Route: 048
     Dates: start: 20080225
  2. ATAZANAVIR SULFATE [Suspect]
     Indication: PROPHYLAXIS AGAINST HIV INFECTION
     Dosage: 300 MG 1 QHS PO
     Route: 048
     Dates: start: 20080225
  3. NORVIR [Suspect]
     Indication: HUMAN IMMUNODEFICIENCY VIRUS TRANSMISSION
     Dosage: 100 1 QHS PO
     Route: 048
     Dates: start: 20080225
  4. COMBIVIR [Suspect]
     Indication: HUMAN IMMUNODEFICIENCY VIRUS TRANSMISSION
     Dosage: 150MG 1 BID PO
     Route: 048
     Dates: start: 20080225
  5. DIFLUCAN [Concomitant]
  6. FERROUS SULFATE [Concomitant]
  7. KEFLEX [Concomitant]
  8. PHENERGAN HCL [Concomitant]
  9. DEMEROL [Concomitant]
  10. VITAMIN TAB [Concomitant]
  11. PEPCID [Concomitant]
  12. MACRODANTIN [Concomitant]
  13. LACTATED RINGER'S [Concomitant]
  14. OXYTOCIN [Concomitant]
  15. ZIDOVUDINE [Concomitant]
  16. AMPICILLIN [Concomitant]
  17. GENTAMICIN [Concomitant]
  18. ACYCLOVIR [Concomitant]
  19. VANCOMYCIN HYDROCHLORIDE [Concomitant]
  20. TOBRAMYCIN [Concomitant]
  21. AMPHOTERICIN B [Concomitant]
  22. DOPAMINE HCL [Concomitant]
  23. PHENOBARBITAL TAB [Concomitant]
  24. ACTIGALL [Concomitant]
  25. TRANSFUSED PLATELETS [Concomitant]
  26. NUTRITIONAL SUPPORT [Concomitant]
  27. TFI [Concomitant]
  28. TPN [Concomitant]
  29. 24 CAL/OZ FORMULA [Concomitant]
  30. SIM 20 [Concomitant]

REACTIONS (14)
  - ANAEMIA NEONATAL [None]
  - APGAR SCORE LOW [None]
  - CARDIAC MURMUR [None]
  - DYSPNOEA [None]
  - HEPATOSPLENOMEGALY NEONATAL [None]
  - HYPOTONIA NEONATAL [None]
  - MATERNAL DRUGS AFFECTING FOETUS [None]
  - NEONATAL DISORDER [None]
  - NEONATAL HEPATOMEGALY [None]
  - PERSISTENT FOETAL CIRCULATION [None]
  - RESPIRATORY DISORDER NEONATAL [None]
  - STAPHYLOCOCCAL BACTERAEMIA [None]
  - THALASSAEMIA ALPHA [None]
  - THROMBOCYTOPENIA NEONATAL [None]
